FAERS Safety Report 6885286-6 (Version None)
Quarter: 2010Q3

REPORT INFORMATION
  Report Type: 
  Country: None (occurrence: None)
  Receive Date: 20100729
  Receipt Date: 20100729
  Transmission Date: 20110219
  Serious: Yes (Hospitalization)
  Sender: FDA-Public Use
  Company Number: None

PATIENT
  Age: 59 Year
  Sex: Male
  Weight: 83 kg

DRUGS (1)
  1. PEPCID [Suspect]
     Indication: GASTROOESOPHAGEAL REFLUX DISEASE
     Dosage: 20 MG ONCE IV BOLUS
     Route: 040
     Dates: start: 20080728, end: 20080728

REACTIONS (3)
  - ABDOMINAL PAIN [None]
  - CHEST DISCOMFORT [None]
  - HYPERTENSION [None]
